FAERS Safety Report 26169054 (Version 1)
Quarter: 2025Q4

REPORT INFORMATION
  Report Type: Spontaneous
  Country: US (occurrence: None)
  Receive Date: 20251216
  Receipt Date: 20251216
  Transmission Date: 20260117
  Serious: Yes (Other)
  Sender: FDA-CTU
  Company Number: None

PATIENT
  Sex: Female

DRUGS (1)
  1. ENBREL [Suspect]
     Active Substance: ETANERCEPT
     Indication: Rheumatoid arthritis
     Dosage: OTHER QUANTITY : 1 ML UNDER THE SKIN ;?FREQUENCY : WEEKLY;?FREQ: INJECT 1 ML UNDER THE SKIN (SUBCUTANEOUS INJECTION) EVERY 7 DAYS.
     Route: 058
     Dates: start: 20251002

REACTIONS (3)
  - Surgery [None]
  - Arthropathy [None]
  - Product dose omission in error [None]
